FAERS Safety Report 13628659 (Version 1)
Quarter: 2017Q2

REPORT INFORMATION
  Report Type: Spontaneous
  Country: FR (occurrence: FR)
  Receive Date: 20170608
  Receipt Date: 20170608
  Transmission Date: 20170830
  Serious: Yes (Other)
  Sender: FDA-Public Use
  Company Number: FR-ASTRAZENECA-2017SE58288

PATIENT
  Age: 845 Month
  Sex: Male

DRUGS (5)
  1. ANGIOX [Suspect]
     Active Substance: BIVALIRUDIN
     Indication: MYOCARDIAL INFARCTION
     Dosage: 250.0MG ONCE/SINGLE ADMINISTRATION
     Route: 042
     Dates: start: 20170507, end: 20170507
  2. KARDEGIC [Suspect]
     Active Substance: ASPIRIN LYSINE
     Indication: MYOCARDIAL INFARCTION
     Route: 048
  3. ASPEGIC [Suspect]
     Active Substance: ASPIRIN DL-LYSINE
     Indication: MYOCARDIAL INFARCTION
     Dosage: SINGLE INTAKE
     Route: 042
     Dates: start: 20170507, end: 20170507
  4. BRILIQUE [Suspect]
     Active Substance: TICAGRELOR
     Indication: MYOCARDIAL INFARCTION
     Route: 048
  5. HEPARIN [Suspect]
     Active Substance: HEPARIN SODIUM
     Indication: MYOCARDIAL INFARCTION
     Dosage: PAN PHARMA; 15000 IU, TWO TIMES A DAY
     Route: 042

REACTIONS (4)
  - Haemothorax [Recovered/Resolved]
  - Epistaxis [Recovered/Resolved]
  - Haemoptysis [Recovered/Resolved]
  - Prothrombin time shortened [Recovered/Resolved]

NARRATIVE: CASE EVENT DATE: 201705
